FAERS Safety Report 8398314 (Version 2)
Quarter: 2019Q2

REPORT INFORMATION
  Report Type: Spontaneous
  Country: CA (occurrence: CA)
  Receive Date: 20120209
  Receipt Date: 20190405
  Transmission Date: 20190711
  Serious: Yes (Other)
  Sender: FDA-Public Use
  Company Number: CA-MYLANLABS-2012S1002393

PATIENT
  Age: 83 Year
  Sex: Female

DRUGS (3)
  1. WARFARIN [Suspect]
     Active Substance: WARFARIN
     Indication: END STAGE RENAL DISEASE
     Dosage: UNK
     Route: 065
  2. IRON [Suspect]
     Active Substance: IRON
     Indication: END STAGE RENAL DISEASE
     Route: 065
  3. CALCIUM [Suspect]
     Active Substance: CALCIUM
     Indication: END STAGE RENAL DISEASE
     Route: 065

REACTIONS (1)
  - Calciphylaxis [Recovered/Resolved]
